FAERS Safety Report 4901552-5 (Version None)
Quarter: 2006Q1

REPORT INFORMATION
  Report Type: 
  Country: None (occurrence: None)
  Receive Date: 20060206
  Receipt Date: 20050203
  Transmission Date: 20060701
  Serious: Yes (Hospitalization)
  Sender: FDA-Public Use
  Company Number: US-BRISTOL-MYERS SQUIBB COMPANY-12848560

PATIENT
  Age: 66 Year
  Sex: Female
  Weight: 79 kg

DRUGS (5)
  1. TAXOL [Suspect]
     Indication: NON-SMALL CELL LUNG CANCER STAGE IIIB
     Dates: start: 20041229, end: 20041229
  2. DEXAMETHASONE TAB [Concomitant]
     Indication: PREMEDICATION
     Dosage: 12 HOURS AND 6 HOURS PRIOR TO INFUSION
     Route: 048
     Dates: start: 20041228, end: 20041229
  3. DEXAMETHASONE TAB [Concomitant]
     Dosage: 45 MINUTES PRIOR TO INFUSION
     Route: 042
     Dates: start: 20041229
  4. DIPHENHYDRAMINE [Concomitant]
     Indication: PREMEDICATION
     Route: 042
     Dates: start: 20041229
  5. CIMETIDINE [Concomitant]
     Indication: PREMEDICATION
     Dosage: 30 MINUTES PRIOR TO INFUSION
     Route: 042
     Dates: start: 20041229

REACTIONS (1)
  - ANAPHYLACTIC REACTION [None]
